FAERS Safety Report 7105215-X (Version None)
Quarter: 2010Q4

REPORT INFORMATION
  Report Type: 
  Country: None (occurrence: None)
  Receive Date: 20101110
  Receipt Date: 20101027
  Transmission Date: 20110411
  Serious: Yes (Hospitalization, Other)
  Sender: FDA-Public Use
  Company Number: 2010P1002008

PATIENT
  Age: 72 Year
  Sex: Male

DRUGS (1)
  1. CLINDAMYCIN [Suspect]
     Indication: TRISMUS

REACTIONS (20)
  - AGRANULOCYTOSIS [None]
  - ANTINUCLEAR ANTIBODY INCREASED [None]
  - ASPIRATION BONE MARROW ABNORMAL [None]
  - ASTHENIA [None]
  - COOMBS DIRECT TEST POSITIVE [None]
  - COUGH [None]
  - DECREASED APPETITE [None]
  - DOUBLE STRANDED DNA ANTIBODY POSITIVE [None]
  - DYSPHAGIA [None]
  - FATIGUE [None]
  - HISTONE ANTIBODY POSITIVE [None]
  - IMMUNE SYSTEM DISORDER [None]
  - LEUKOPENIA [None]
  - LUNG INFECTION [None]
  - NEUTROPENIA [None]
  - NON-CARDIAC CHEST PAIN [None]
  - NORMOCHROMIC NORMOCYTIC ANAEMIA [None]
  - PHARYNGEAL ERYTHEMA [None]
  - PLEURAL EFFUSION [None]
  - SYNOVITIS [None]
